FAERS Safety Report 7719828-5 (Version None)
Quarter: 2011Q3

REPORT INFORMATION
  Report Type: 
  Country: None (occurrence: None)
  Receive Date: 20110831
  Receipt Date: 20110822
  Transmission Date: 20111222
  Serious: No
  Sender: FDA-Public Use
  Company Number: US-BIOGENIDEC-2011BI031202

PATIENT
  Age: 55 Year
  Sex: Female

DRUGS (4)
  1. AVONEX [Concomitant]
     Indication: MULTIPLE SCLEROSIS
     Route: 030
     Dates: start: 20100530
  2. TYSABRI [Suspect]
     Indication: MULTIPLE SCLEROSIS
     Route: 042
     Dates: start: 20110516
  3. FENTANYL-100 [Concomitant]
     Indication: ARTHRALGIA
  4. BOTOX [Concomitant]
     Indication: MUSCLE SPASMS

REACTIONS (7)
  - BAND SENSATION [None]
  - TREMOR [None]
  - ASTHENIA [None]
  - MUSCLE SPASMS [None]
  - VISION BLURRED [None]
  - DIZZINESS [None]
  - URINARY TRACT INFECTION [None]
